FAERS Safety Report 5104837-5 (Version None)
Quarter: 2006Q3

REPORT INFORMATION
  Report Type: 
  Country: None (occurrence: None)
  Receive Date: 20060914
  Receipt Date: 20040719
  Transmission Date: 20061208
  Serious: Yes (Other)
  Sender: FDA-Public Use
  Company Number: US-GLAXOSMITHKLINE-A0522608A

PATIENT
  Sex: Female

DRUGS (6)
  1. PAXIL [Suspect]
     Indication: ANXIETY
     Route: 048
  2. PAXIL CR [Suspect]
     Indication: ANXIETY
     Route: 048
  3. WELLBUTRIN [Concomitant]
  4. LITHOBID [Concomitant]
  5. CLONAZEPAM [Concomitant]
  6. SERZONE [Concomitant]

REACTIONS (11)
  - BALANCE DISORDER [None]
  - BIPOLAR DISORDER [None]
  - DIZZINESS [None]
  - DRUG WITHDRAWAL SYNDROME [None]
  - DYSPNOEA [None]
  - MOOD SWINGS [None]
  - NASOPHARYNGITIS [None]
  - NAUSEA [None]
  - SUICIDAL IDEATION [None]
  - TREATMENT NONCOMPLIANCE [None]
  - VERTIGO [None]
